FAERS Safety Report 8012720-0 (Version None)
Quarter: 2011Q4

REPORT INFORMATION
  Report Type: 
  Country: None (occurrence: None)
  Receive Date: 20111229
  Receipt Date: 20111219
  Transmission Date: 20120403
  Serious: Yes (Hospitalization)
  Sender: FDA-Public Use
  Company Number: US-BAYER-2011-044886

PATIENT
  Age: 41 Year
  Sex: Female

DRUGS (13)
  1. ANALGESICS [Concomitant]
  2. YASMIN [Suspect]
     Indication: PREMENSTRUAL SYNDROME
     Dosage: UNK
     Route: 048
     Dates: start: 20030101, end: 20030101
  3. DIURETICS [Concomitant]
  4. STARCH BLOCKADE [Concomitant]
     Dosage: UNK
     Dates: start: 20090825
  5. DROSPIRENONE AND ETHINYL ESTRADIOL [Suspect]
  6. NSAID'S [Concomitant]
  7. POTASSIUM [Concomitant]
  8. 5HTP [Concomitant]
     Dosage: UNK
     Dates: start: 20090825
  9. YASMIN [Suspect]
  10. PHENTERMINE [Concomitant]
  11. ANTIBIOTICS [Concomitant]
  12. DROSPIRENONE AND ETHINYL ESTRADIOL [Suspect]
     Indication: PREMENSTRUAL SYNDROME
     Dosage: UNK
     Route: 048
     Dates: start: 20040101, end: 20091201
  13. PREVACID [Concomitant]
     Dosage: DAILY DOSE 30 MG
     Route: 048
     Dates: start: 20090825

REACTIONS (18)
  - ABDOMINAL DISTENSION [None]
  - CHOLANGITIS [None]
  - GASTROOESOPHAGEAL REFLUX DISEASE [None]
  - LIVER INJURY [None]
  - MUSCULOSKELETAL PAIN [None]
  - ABDOMINAL PAIN [None]
  - DYSPHAGIA [None]
  - MENTAL DISORDER [None]
  - BILE DUCT STONE [None]
  - ABDOMINAL PAIN UPPER [None]
  - BILE DUCT OBSTRUCTION [None]
  - CHOLELITHIASIS [None]
  - ACQUIRED OESOPHAGEAL WEB [None]
  - GASTRITIS [None]
  - WEIGHT INCREASED [None]
  - CHEST PAIN [None]
  - BURSITIS [None]
  - PAIN [None]
